FAERS Safety Report 5311999-3 (Version None)
Quarter: 2007Q2

REPORT INFORMATION
  Report Type: 
  Country: None (occurrence: None)
  Receive Date: 20070430
  Receipt Date: 20060606
  Transmission Date: 20071010
  Serious: No
  Sender: FDA-Public Use
  Company Number: 2006UW11552

PATIENT
  Age: 73 Year
  Sex: Female
  Weight: 85.3 kg

DRUGS (3)
  1. NEXIUM [Suspect]
     Indication: GASTROOESOPHAGEAL REFLUX DISEASE
     Route: 048
     Dates: start: 20020101
  2. CHOLESTEROL MEDICATION [Concomitant]
  3. HIGH BLOOD PRESSURE MEDICATIONS [Concomitant]

REACTIONS (5)
  - CARDIAC DISORDER [None]
  - CARDIAC FLUTTER [None]
  - CHEST DISCOMFORT [None]
  - DEPRESSION [None]
  - HYPERTENSION [None]
